FAERS Safety Report 18477216 (Version 2)
Quarter: 2020Q4

REPORT INFORMATION
  Report Type: Report from Study
  Country: US (occurrence: US)
  Receive Date: 20201107
  Receipt Date: 20201120
  Transmission Date: 20210114
  Serious: Yes (Other)
  Sender: FDA-Public Use
  Company Number: NVSC2020US294839

PATIENT
  Age: 25 Year
  Sex: Male

DRUGS (2)
  1. GILENYA [Suspect]
     Active Substance: FINGOLIMOD HYDROCHLORIDE
     Indication: MULTIPLE SCLEROSIS
  2. GILENYA [Suspect]
     Active Substance: FINGOLIMOD HYDROCHLORIDE
     Indication: RELAPSING-REMITTING MULTIPLE SCLEROSIS
     Dosage: 0.5 MG, QD
     Route: 048
     Dates: start: 20201031

REACTIONS (6)
  - Multiple sclerosis [Unknown]
  - Visual impairment [Unknown]
  - Diplopia [Unknown]
  - Headache [Unknown]
  - Myalgia [Unknown]
  - Sluggishness [Unknown]

NARRATIVE: CASE EVENT DATE: 20201031
